FAERS Safety Report 23026454 (Version 1)
Quarter: 2023Q4

REPORT INFORMATION
  Report Type: Spontaneous
  Country: US (occurrence: US)
  Receive Date: 20231004
  Receipt Date: 20231004
  Transmission Date: 20240110
  Serious: Yes (Hospitalization)
  Sender: FDA-Public Use
  Company Number: US-drreddys-LIT/USA/23/0178617

PATIENT
  Age: 71 Year
  Sex: Female

DRUGS (2)
  1. SODIUM NITROPRUSSIDE [Suspect]
     Active Substance: SODIUM NITROPRUSSIDE
     Indication: Cardiac failure chronic
     Dosage: 0.25 MICROGRAM/KG/MINUTES
  2. SODIUM NITROPRUSSIDE [Suspect]
     Active Substance: SODIUM NITROPRUSSIDE
     Dosage: 3 MICROGRAM/KG/MINUTES

REACTIONS (1)
  - Toxicity to various agents [Recovering/Resolving]
